FAERS Safety Report 9461560 (Version 1)
Quarter: 2013Q3

REPORT INFORMATION
  Report Type: Spontaneous
  Country: US (occurrence: None)
  Receive Date: 20130814
  Receipt Date: 20130814
  Transmission Date: 20140515
  Serious: Yes (Disabling)
  Sender: FDA-Public Use
  Company Number: None

PATIENT
  Age: 50 Year
  Sex: Male
  Weight: 77.11 kg

DRUGS (2)
  1. BUPROPION [Suspect]
     Indication: DEPRESSION
     Route: 048
     Dates: start: 20130708, end: 20130805
  2. BUPROPION [Suspect]
     Indication: ANXIETY
     Route: 048
     Dates: start: 20130708, end: 20130805

REACTIONS (3)
  - Lethargy [None]
  - Somnolence [None]
  - No therapeutic response [None]
